FAERS Safety Report 5484177-5 (Version None)
Quarter: 2007Q4

REPORT INFORMATION
  Report Type: 
  Country: None (occurrence: None)
  Receive Date: 20071009
  Receipt Date: 20070927
  Transmission Date: 20080405
  Serious: Yes (Hospitalization, Other)
  Sender: FDA-Public Use
  Company Number: 2007AP001059

PATIENT
  Age: 60 Year
  Sex: Male

DRUGS (2)
  1. PAROXETINE HCL [Suspect]
     Indication: DEPRESSION
     Dosage: 1 DF; QD PO
     Route: 048
     Dates: start: 20040825, end: 20070918
  2. ROSUVASTATIN (ROSUVASTATIN) [Concomitant]

REACTIONS (2)
  - RETROPERITONEAL FIBROSIS [None]
  - URETERIC OBSTRUCTION [None]
